FAERS Safety Report 24589662 (Version 1)
Quarter: 2024Q4

REPORT INFORMATION
  Report Type: Spontaneous
  Country: CN (occurrence: CN)
  Receive Date: 20241107
  Receipt Date: 20241107
  Transmission Date: 20250115
  Serious: Yes (Hospitalization)
  Sender: ELI LILLY AND COMPANY
  Company Number: CN-Merck Healthcare KGaA-2024057777

PATIENT
  Age: 54 Year
  Sex: Male
  Weight: 66 kg

DRUGS (5)
  1. ERBITUX [Suspect]
     Active Substance: CETUXIMAB
     Indication: Colon cancer
     Dosage: 900 MG, UNKNOWN
     Route: 042
     Dates: start: 20240921, end: 20240921
  2. OXALIPLATIN [Suspect]
     Active Substance: OXALIPLATIN
     Indication: Colon cancer
     Dosage: 150 MG, DAILY
     Route: 042
     Dates: start: 20240921, end: 20240921
  3. LEUCOVORIN CALCIUM [Suspect]
     Active Substance: LEUCOVORIN CALCIUM
     Indication: Colon cancer
     Dosage: 0.72 G, DAILY
     Route: 042
     Dates: start: 20240921, end: 20240921
  4. FLUOROURACIL [Suspect]
     Active Substance: FLUOROURACIL
     Indication: Colon cancer
     Dosage: 0.7 G, DAILY
     Route: 040
     Dates: start: 20240921, end: 20240921
  5. FLUOROURACIL [Suspect]
     Active Substance: FLUOROURACIL
     Dosage: 2.125 G, DAILY
     Route: 042
     Dates: start: 20240921, end: 20240922

REACTIONS (1)
  - Granulocyte count decreased [Unknown]

NARRATIVE: CASE EVENT DATE: 20241008
